FAERS Safety Report 10737769 (Version 1)
Quarter: 2015Q1

REPORT INFORMATION
  Report Type: Spontaneous
  Country: US (occurrence: None)
  Receive Date: 20150112
  Receipt Date: 20150112
  Transmission Date: 20150721
  Serious: Yes (Death)
  Sender: FDA-Public Use
  Company Number: 1371755

PATIENT
  Age: 88 Year
  Sex: Female
  Weight: 87.8 kg

DRUGS (4)
  1. LABETALOL [Concomitant]
     Active Substance: LABETALOL\LABETALOL HYDROCHLORIDE
  2. HYDRALAZINE (HYDRALAZINE) [Concomitant]
     Active Substance: HYDRALAZINE HYDROCHLORIDE
  3. ACTIVASE [Suspect]
     Active Substance: ALTEPLASE
     Indication: CEREBROVASCULAR ACCIDENT
     Dosage: LOADING DOSE (NOT OTHERWISE SPECIFIED)
     Route: 042
     Dates: start: 20140314, end: 20140314
  4. FAMOTIDINE (FAMOTIDINE) [Concomitant]
     Active Substance: FAMOTIDINE

REACTIONS (2)
  - Haemorrhagic stroke [None]
  - Haemorrhage intracranial [None]

NARRATIVE: CASE EVENT DATE: 20140314
